FAERS Safety Report 16771521 (Version 1)
Quarter: 2019Q3

REPORT INFORMATION
  Report Type: Spontaneous
  Country: PA (occurrence: PA)
  Receive Date: 20190904
  Receipt Date: 20190904
  Transmission Date: 20191005
  Serious: Yes (Other)
  Sender: FDA-Public Use
  Company Number: PA-PFIZER INC-2019379935

PATIENT
  Sex: Female

DRUGS (2)
  1. IBRANCE [Suspect]
     Active Substance: PALBOCICLIB
     Dosage: UNK
  2. RIBOCICLIB. [Suspect]
     Active Substance: RIBOCICLIB
     Dosage: UNK

REACTIONS (1)
  - Hyperkalaemia [Unknown]
